FAERS Safety Report 8336858-3 (Version None)
Quarter: 2012Q2

REPORT INFORMATION
  Report Type: 
  Country: None (occurrence: None)
  Receive Date: 20120504
  Receipt Date: 20120426
  Transmission Date: 20120825
  Serious: Yes (Hospitalization)
  Sender: FDA-Public Use
  Company Number: US-VIROPHARMA INCORPORATED-20120412CINRY2845

PATIENT
  Sex: Female
  Weight: 97.156 kg

DRUGS (1)
  1. CINRYZE [Suspect]
     Indication: HEREDITARY ANGIOEDEMA
     Route: 065
     Dates: start: 20090710

REACTIONS (2)
  - JOINT INJURY [None]
  - THERAPY REGIMEN CHANGED [None]
